FAERS Safety Report 6328701-9 (Version None)
Quarter: 2009Q3

REPORT INFORMATION
  Report Type: 
  Country: None (occurrence: None)
  Receive Date: 20090826
  Receipt Date: 20090818
  Transmission Date: 20100115
  Serious: Yes (Death, Other)
  Sender: FDA-Public Use
  Company Number: PHHY2009JP24666

PATIENT
  Sex: Female
  Weight: 48 kg

DRUGS (21)
  1. STI571/CGP57148B T35717+TAB [Suspect]
     Indication: ACUTE LYMPHOCYTIC LEUKAEMIA
     Dosage: 600 MG/DAY
     Route: 048
     Dates: start: 20070314, end: 20070319
  2. STI571/CGP57148B T35717+TAB [Suspect]
     Dosage: 600 MG/DAY
     Route: 048
     Dates: start: 20070326, end: 20070401
  3. STI571/CGP57148B T35717+TAB [Suspect]
     Dosage: 600 MG/DAY
     Route: 048
     Dates: start: 20070402, end: 20070506
  4. LANIRAPID [Concomitant]
     Dosage: 0.05 MG, UNK
     Route: 048
     Dates: start: 20070314, end: 20070413
  5. LASIX [Concomitant]
     Dosage: 40 MG, UNK
     Route: 048
     Dates: start: 20070314, end: 20070503
  6. LASIX [Concomitant]
     Dosage: 20 MG, QD
     Route: 042
  7. MEILAX [Concomitant]
     Dosage: 2 MG, UNK
     Route: 048
     Dates: start: 20070314
  8. MEILAX [Concomitant]
     Dosage: 1 MG, UNK
     Route: 048
     Dates: end: 20070503
  9. TAKEPRON [Concomitant]
     Indication: PROPHYLAXIS
     Dosage: 15 MG, UNK
     Route: 048
     Dates: start: 20070314, end: 20070503
  10. BAKTAR [Concomitant]
     Indication: PROPHYLAXIS
     Dosage: 4 DF, UNK
     Route: 048
     Dates: start: 20070314, end: 20070503
  11. DIFLUCAN [Concomitant]
     Indication: PROPHYLAXIS
     Dosage: 200 MG, UNK
     Route: 048
     Dates: start: 20070314, end: 20070401
  12. LUPRAC [Concomitant]
     Dosage: 4 MG, UNK
     Route: 048
     Dates: start: 20070314, end: 20070425
  13. DEPAS [Concomitant]
     Dosage: 0.5 MG, UNK
     Route: 048
     Dates: start: 20070326, end: 20070425
  14. MYSLEE [Concomitant]
     Dosage: 5 MG, UNK
     Route: 048
     Dates: start: 20070326, end: 20070425
  15. EVAMYL [Concomitant]
     Dosage: 1 MG, UNK
     Route: 048
     Dates: start: 20070326, end: 20070425
  16. DOGMATYL [Concomitant]
     Dosage: 50 MG, UNK
     Route: 048
     Dates: start: 20070406, end: 20070503
  17. SOLANAX [Concomitant]
     Dosage: 0.8 MG, UNK
     Route: 048
     Dates: start: 20070424, end: 20070502
  18. NOVOLIN R [Concomitant]
     Dosage: 4 IU, UNK
     Route: 058
     Dates: start: 20070314, end: 20070326
  19. ATARAX [Concomitant]
     Dosage: 25 MG, UNK
     Route: 042
     Dates: start: 20070427, end: 20070506
  20. GLUFAST [Concomitant]
     Dosage: 300 MG, UNK
     Route: 048
     Dates: start: 20070314, end: 20070328
  21. RED BLOOD CELLS [Concomitant]
     Indication: ACUTE LYMPHOCYTIC LEUKAEMIA
     Dosage: 2 IU, UNK
     Route: 042
     Dates: start: 20070328, end: 20070427

REACTIONS (14)
  - ASPARTATE AMINOTRANSFERASE INCREASED [None]
  - BLOOD BILIRUBIN INCREASED [None]
  - BLOOD CREATININE INCREASED [None]
  - BLOOD PRESSURE DECREASED [None]
  - BLOOD UREA INCREASED [None]
  - BLOOD URIC ACID INCREASED [None]
  - BRADYCARDIA [None]
  - C-REACTIVE PROTEIN INCREASED [None]
  - CARDIAC FAILURE CONGESTIVE [None]
  - FAECES DISCOLOURED [None]
  - GAMMA-GLUTAMYLTRANSFERASE INCREASED [None]
  - GASTRIC ULCER HAEMORRHAGE [None]
  - GENERAL PHYSICAL HEALTH DETERIORATION [None]
  - PULMONARY HYPERTENSION [None]
